FAERS Safety Report 15060990 (Version 1)
Quarter: 2018Q2

REPORT INFORMATION
  Report Type: Spontaneous
  Country: US (occurrence: US)
  Receive Date: 20180625
  Receipt Date: 20180625
  Transmission Date: 20180711
  Serious: No
  Sender: FDA-Public Use
  Company Number: US-ROCHE-2035397

PATIENT
  Age: 54 Year
  Sex: Female
  Weight: 60.61 kg

DRUGS (4)
  1. KLONOPIN [Suspect]
     Active Substance: CLONAZEPAM
     Indication: PANIC DISORDER
     Dosage: ORDERED AS NEEDED
     Route: 065
     Dates: start: 1991, end: 201711
  2. KLONOPIN [Suspect]
     Active Substance: CLONAZEPAM
     Dosage: ORDERED AS NEEDED
     Route: 065
     Dates: start: 201711, end: 201711
  3. RITALIN [Concomitant]
     Active Substance: METHYLPHENIDATE HYDROCHLORIDE
     Dosage: ONGOING: UNKNOWN
     Route: 065
  4. ADDERALL [Concomitant]
     Active Substance: AMPHETAMINE ASPARTATE\AMPHETAMINE SULFATE\DEXTROAMPHETAMINE SACCHARATE\DEXTROAMPHETAMINE SULFATE
     Dosage: ONGOING: UNKNOWN
     Route: 065

REACTIONS (2)
  - Detoxification [Not Recovered/Not Resolved]
  - Memory impairment [Not Recovered/Not Resolved]

NARRATIVE: CASE EVENT DATE: 201711
